FAERS Safety Report 24922122 (Version 4)
Quarter: 2025Q4

REPORT INFORMATION
  Report Type: Spontaneous
  Country: US (occurrence: US)
  Receive Date: 20250204
  Receipt Date: 20251117
  Transmission Date: 20260117
  Serious: Yes (Life-Threatening, Other)
  Sender: CELLTRION
  Company Number: US-CELLTRION INC.-2025US002790

PATIENT

DRUGS (2)
  1. INFLECTRA [Suspect]
     Active Substance: INFLIXIMAB-DYYB
     Indication: Arthritis
     Dosage: 15 TO 17 MONTHS OF TAKING THIS MEDICATION EVERY 8 WEEKS (EVERY 2 MONTHS OR, SPACED OUT TO, EVERY 8 W
     Route: 042
     Dates: start: 20220226, end: 20240309
  2. INFLECTRA [Suspect]
     Active Substance: INFLIXIMAB-DYYB
     Indication: Rheumatoid arthritis

REACTIONS (1)
  - Breast cancer [Unknown]

NARRATIVE: CASE EVENT DATE: 20240101
